FAERS Safety Report 7746897-9 (Version None)
Quarter: 2011Q3

REPORT INFORMATION
  Report Type: 
  Country: None (occurrence: None)
  Receive Date: 20110913
  Receipt Date: 20110901
  Transmission Date: 20111222
  Serious: Yes (Other)
  Sender: FDA-Public Use
  Company Number: JP-CELGENEUS-087-21660-11071109

PATIENT
  Sex: Female
  Weight: 62 kg

DRUGS (12)
  1. ABRAXANE [Suspect]
     Dosage: 400 MILLIGRAM
     Route: 050
     Dates: start: 20101224, end: 20101224
  2. ABRAXANE [Suspect]
     Indication: BREAST CANCER METASTATIC
     Dosage: 420 MILLIGRAM
     Route: 050
     Dates: start: 20101124, end: 20101124
  3. ALPRAZOLAM [Concomitant]
     Dosage: .4 MILLIGRAM
     Route: 048
     Dates: start: 20101224
  4. ZOMETA [Suspect]
     Indication: BREAST CANCER METASTATIC
     Dosage: 4 MILLIGRAM
     Route: 065
     Dates: start: 20101124, end: 20110124
  5. DECADRON [Concomitant]
     Dosage: 6.6 MILLIGRAM
     Route: 041
     Dates: start: 20101124, end: 20101124
  6. DUROTEP [Concomitant]
     Route: 065
     Dates: start: 20101224
  7. OMEPRAZOLE [Concomitant]
     Dosage: 10 MILLIGRAM
     Route: 048
     Dates: start: 20101224
  8. KYTRIL [Concomitant]
     Dosage: 3 MILLIGRAM
     Route: 041
     Dates: start: 20101124, end: 20101124
  9. KYTRIL [Concomitant]
     Dosage: 3 MILLIGRAM
     Route: 041
     Dates: start: 20101224, end: 20101224
  10. MOTILIUM [Concomitant]
     Dosage: 30 MILLIGRAM
     Route: 048
     Dates: start: 20101224
  11. COCARL [Concomitant]
     Dosage: 2400 MILLIGRAM
     Route: 048
     Dates: start: 20101224
  12. MOBIC [Concomitant]
     Dosage: 10 MILLIGRAM
     Route: 048
     Dates: start: 20101224

REACTIONS (4)
  - NEUTROPHIL COUNT DECREASED [None]
  - WHITE BLOOD CELL COUNT DECREASED [None]
  - BLOOD CREATININE INCREASED [None]
  - RENAL IMPAIRMENT [None]
